FAERS Safety Report 17921817 (Version 1)
Quarter: 2020Q2

REPORT INFORMATION
  Report Type: Spontaneous
  Country: FR (occurrence: FR)
  Receive Date: 20200622
  Receipt Date: 20200622
  Transmission Date: 20200714
  Serious: Yes (Other)
  Sender: FDA-Public Use
  Company Number: FR-ROCHE-2427943

PATIENT
  Age: 84 Year
  Sex: Male

DRUGS (3)
  1. VINBLASTINE [Suspect]
     Active Substance: VINBLASTINE
     Indication: IMMUNE THROMBOCYTOPENIA
     Route: 065
  2. MYCOPHENOLATE MOFETIL. [Suspect]
     Active Substance: MYCOPHENOLATE MOFETIL
     Indication: PRODUCT USED FOR UNKNOWN INDICATION
     Dosage: UNK
     Route: 065
  3. RITUXIMAB. [Suspect]
     Active Substance: RITUXIMAB
     Indication: IMMUNE THROMBOCYTOPENIA
     Dosage: 375 MG/M2, Q4W?ONE COURSE OF THERAPY
     Route: 041

REACTIONS (6)
  - Off label use [Unknown]
  - Pneumocystis jirovecii infection [Recovered/Resolved]
  - Lung disorder [Recovered/Resolved]
  - Postoperative wound infection [Recovered/Resolved]
  - Bronchitis [Recovered/Resolved]
  - Product use in unapproved indication [Unknown]
